FAERS Safety Report 7620304-9 (Version None)
Quarter: 2011Q3

REPORT INFORMATION
  Report Type: 
  Country: None (occurrence: None)
  Receive Date: 20110719
  Receipt Date: 20110707
  Transmission Date: 20111222
  Serious: Yes (Hospitalization)
  Sender: FDA-Public Use
  Company Number: BE-JNJFOC-20110705738

PATIENT
  Sex: Female
  Weight: 109 kg

DRUGS (42)
  1. CONTRAMAL RETARD [Concomitant]
     Dates: start: 20110119
  2. CONTRAMAL RETARD [Concomitant]
     Indication: PULMONARY EMBOLISM
     Dates: start: 20110114, end: 20110118
  3. ENOXAPARIN SODIUM [Concomitant]
     Dates: start: 20110110, end: 20110110
  4. ENOXAPARIN SODIUM [Concomitant]
     Dates: start: 20110119
  5. TRAMADOL HCL [Concomitant]
     Dates: start: 20110114, end: 20110114
  6. ACEDICON [Concomitant]
     Dates: start: 20110112, end: 20110113
  7. ULTRA K [Concomitant]
     Dates: start: 20110203, end: 20110203
  8. TUSSIPECT (COUGH AND COLD PREPARATIONS) [Concomitant]
     Dates: start: 20110111, end: 20110111
  9. LITICAN [Concomitant]
     Dates: start: 20110111, end: 20110111
  10. RIVAROXABAN [Suspect]
     Route: 048
     Dates: start: 20110110, end: 20110131
  11. ENOXAPARIN SODIUM [Concomitant]
     Dates: start: 20110131, end: 20110131
  12. TRAMADOL HCL [Concomitant]
     Dates: start: 20110112, end: 20110112
  13. ACEDICON [Concomitant]
     Dates: start: 20110117, end: 20110117
  14. ALLOPURINOL [Concomitant]
     Dates: start: 20110113, end: 20110117
  15. DAFALGAN CODEINE [Concomitant]
     Dates: start: 20110117, end: 20110117
  16. ENOXAPARIN SODIUM [Concomitant]
     Dates: start: 20110609
  17. PERFUSALGAM [Concomitant]
     Dates: start: 20110202, end: 20110202
  18. TRAMADOL HCL [Concomitant]
     Dates: start: 20110110, end: 20110111
  19. AUGMENTIN '125' [Concomitant]
     Dates: start: 20110111, end: 20110131
  20. ACEDICON [Concomitant]
     Dates: start: 20110114, end: 20110116
  21. ACEDICON [Concomitant]
     Dates: start: 20110118, end: 20110118
  22. ULTRA K [Concomitant]
     Dates: start: 20110114, end: 20110114
  23. TUSSIPECT (COUGH AND COLD PREPARATIONS) [Concomitant]
     Dates: start: 20110203, end: 20110203
  24. TUSSIPECT (COUGH AND COLD PREPARATIONS) [Concomitant]
     Dates: start: 20110208, end: 20110209
  25. RIVAROXABAN [Suspect]
     Indication: PULMONARY EMBOLISM
     Route: 048
     Dates: start: 20110323, end: 20110607
  26. ENOXAPARIN SODIUM [Concomitant]
     Dates: start: 20110607, end: 20110608
  27. MOVIPREP [Concomitant]
     Dates: start: 20110112, end: 20110118
  28. ULTRA K [Concomitant]
     Dates: start: 20110204, end: 20110204
  29. DAFALGAN CODEINE [Concomitant]
     Dates: start: 20110609, end: 20110609
  30. PERFUSALGAM [Concomitant]
     Dates: start: 20110110, end: 20110117
  31. AMLODIPINE BESYLATE [Concomitant]
     Dates: start: 20110117
  32. LITICAN [Concomitant]
     Dates: start: 20110205, end: 20110205
  33. ENOXAPARIN SODIUM [Concomitant]
     Dates: start: 20110201, end: 20110322
  34. OLMESARTAN MEDOXOMIL [Concomitant]
     Dates: start: 20101201
  35. ULTRA K [Concomitant]
     Dates: start: 20110113, end: 20110113
  36. TUSSIPECT (COUGH AND COLD PREPARATIONS) [Concomitant]
     Dates: start: 20110112, end: 20110118
  37. TUSSIPECT (COUGH AND COLD PREPARATIONS) [Concomitant]
     Dates: start: 20110205, end: 20110205
  38. TUSSIPECT (COUGH AND COLD PREPARATIONS) [Concomitant]
     Dates: start: 20110207, end: 20110207
  39. LITICAN [Concomitant]
     Dates: start: 20110112, end: 20110112
  40. ENOXAPARIN SODIUM [Concomitant]
     Dates: start: 20110608, end: 20110608
  41. TRAMADOL HCL [Concomitant]
     Dates: start: 20110111, end: 20110111
  42. LITICAN [Concomitant]
     Dates: start: 20110203, end: 20110204

REACTIONS (2)
  - PNEUMONIA NECROTISING [None]
  - VENA CAVA THROMBOSIS [None]
